FAERS Safety Report 6722136-2 (Version None)
Quarter: 2010Q2

REPORT INFORMATION
  Report Type: 
  Country: None (occurrence: None)
  Receive Date: 20100512
  Receipt Date: 20100428
  Transmission Date: 20101027
  Serious: Yes (Hospitalization, Other)
  Sender: FDA-Public Use
  Company Number: US-ELI_LILLY_AND_COMPANY-US201004008505

PATIENT
  Sex: Female

DRUGS (13)
  1. FORTEO [Suspect]
     Indication: OSTEOPOROSIS
     Dosage: 20 UG, DAILY (1/D)
     Dates: start: 20100101
  2. HUMALOG [Concomitant]
     Indication: DIABETES MELLITUS
  3. CYMBALTA [Concomitant]
  4. LEVAQUIN [Concomitant]
  5. FLAGYL [Concomitant]
  6. PROGRAF [Concomitant]
  7. DIOVAN [Concomitant]
     Indication: BLOOD PRESSURE
  8. CLONIDINE [Concomitant]
     Indication: BLOOD PRESSURE
  9. FISH OIL [Concomitant]
  10. VITAMIN D [Concomitant]
  11. CALCIUM [Concomitant]
  12. FOLIC ACID [Concomitant]
  13. LEVEMIR [Concomitant]
     Indication: DIABETES MELLITUS

REACTIONS (7)
  - BONE PAIN [None]
  - COLITIS [None]
  - CONSTIPATION [None]
  - DIABETES MELLITUS [None]
  - DIZZINESS POSTURAL [None]
  - GAIT DISTURBANCE [None]
  - NEPHROPATHY [None]
